FAERS Safety Report 5764291-7 (Version None)
Quarter: 2008Q2

REPORT INFORMATION
  Report Type: 
  Country: None (occurrence: None)
  Receive Date: 20080610
  Receipt Date: 20080122
  Transmission Date: 20081010
  Serious: No
  Sender: FDA-Public Use
  Company Number: US-BOEHRINGER INGELHEIM GMBH, GERMANY-2007-BP-16662BP

PATIENT
  Sex: Female
  Weight: 82 kg

DRUGS (23)
  1. MIRAPEX [Suspect]
     Indication: RESTLESS LEGS SYNDROME
     Dates: start: 20000101, end: 20060201
  2. REQUIP [Concomitant]
     Indication: RESTLESS LEGS SYNDROME
  3. EFFEXOR [Concomitant]
     Indication: DEPRESSION
  4. ANEROL [Concomitant]
     Indication: HYPERTENSION
  5. ZETIA [Concomitant]
     Indication: BLOOD CHOLESTEROL
  6. VALIUM [Concomitant]
  7. PRILOSEC [Concomitant]
  8. FELODIPINE [Concomitant]
  9. METFORMIN HCL [Concomitant]
  10. CLONAZEPAM [Concomitant]
  11. NEURONTIN [Concomitant]
  12. DARVOCET-N 100 [Concomitant]
     Indication: PAIN IN EXTREMITY
  13. RESTORIL [Concomitant]
  14. BONTRIL [Concomitant]
  15. AMBIEN [Concomitant]
  16. TYLENOL W/ CODEINE [Concomitant]
  17. ULTRAM [Concomitant]
     Indication: PAIN
  18. FELDENE [Concomitant]
  19. NAPROXEN [Concomitant]
  20. PHENTERMINE [Concomitant]
     Indication: WEIGHT DECREASED
  21. TRAZODONE HCL [Concomitant]
  22. MELATONIN [Concomitant]
  23. HYDROCODONE [Concomitant]
     Indication: RESTLESS LEGS SYNDROME

REACTIONS (8)
  - ANXIETY [None]
  - DEPRESSION [None]
  - EMOTIONAL DISTRESS [None]
  - FEAR [None]
  - OBSESSIVE-COMPULSIVE DISORDER [None]
  - PAIN [None]
  - PATHOLOGICAL GAMBLING [None]
  - STRESS [None]
